FAERS Safety Report 6867038-6 (Version None)
Quarter: 2010Q2

REPORT INFORMATION
  Report Type: 
  Country: None (occurrence: None)
  Receive Date: 20100610
  Receipt Date: 20100125
  Transmission Date: 20101027
  Serious: No
  Sender: FDA-Public Use
  Company Number: 2010SP005557

PATIENT
  Age: 58 Year
  Sex: Female

DRUGS (11)
  1. SAPHRIS [Suspect]
     Indication: DRUG USE FOR UNKNOWN INDICATION
     Dosage: 10 MG;BID;SL
     Route: 060
  2. ALVESCO [Concomitant]
  3. AMLODIPINE [Concomitant]
  4. ASPIRIN [Concomitant]
  5. ATIVAN [Concomitant]
  6. FLONASE [Concomitant]
  7. LACTULOSE [Concomitant]
  8. LISINOPRIL [Concomitant]
  9. MORPHINE SULFATE [Concomitant]
  10. PAXIL [Concomitant]
  11. RANITIDINE [Concomitant]

REACTIONS (2)
  - HYPOAESTHESIA ORAL [None]
  - PHARYNGEAL HYPOAESTHESIA [None]
